FAERS Safety Report 24737538 (Version 2)
Quarter: 2024Q4

REPORT INFORMATION
  Report Type: Report from Study
  Country: US (occurrence: US)
  Receive Date: 20241216
  Receipt Date: 20241218
  Transmission Date: 20250114
  Serious: Yes (Other)
  Sender: UCB
  Company Number: US-UCBSA-2024064686

PATIENT
  Age: 15 Year
  Sex: Female
  Weight: 36 kg

DRUGS (1)
  1. FINTEPLA [Suspect]
     Active Substance: FENFLURAMINE
     Indication: Seizure
     Dosage: 0.46 MILLIGRAM/KILOGRAM PER DAY

REACTIONS (2)
  - Tricuspid valve incompetence [Not Recovered/Not Resolved]
  - Agitation [Unknown]

NARRATIVE: CASE EVENT DATE: 20241209
